FAERS Safety Report 4554416-3 (Version None)
Quarter: 2005Q2

REPORT INFORMATION
  Report Type: 
  Country: None (occurrence: None)
  Receive Date: 20050118
  Receipt Date: 20040213
  Transmission Date: 20051028
  Serious: Yes (Hospitalization)
  Sender: FDA-Public Use
  Company Number: 200410609FR

PATIENT
  Age: 45 Year
  Sex: Male

DRUGS (7)
  1. RIFATER [Suspect]
     Indication: PULMONARY TUBERCULOSIS
     Route: 048
     Dates: end: 20031206
  2. RIFAMPIN AND ISONIAZID [Suspect]
     Indication: PULMONARY TUBERCULOSIS
     Route: 048
     Dates: start: 20031206, end: 20031215
  3. DI-HYDAN [Suspect]
     Indication: EPILEPSY
     Route: 048
     Dates: end: 20031215
  4. PHENOBARBITAL TAB [Concomitant]
     Indication: EPILEPSY
     Route: 048
     Dates: end: 20031215
  5. DEPAKENE [Concomitant]
     Indication: EPILEPSY
     Route: 048
     Dates: end: 20031215
  6. MYAMBUTOL [Concomitant]
     Indication: PULMONARY TUBERCULOSIS
     Route: 048
     Dates: start: 20031206, end: 20031215
  7. RIFATER [Concomitant]
     Route: 048
     Dates: start: 20031101, end: 20031206

REACTIONS (10)
  - ALANINE AMINOTRANSFERASE INCREASED [None]
  - ASPARTATE AMINOTRANSFERASE INCREASED [None]
  - BALANCE DISORDER [None]
  - DIFFICULTY IN WALKING [None]
  - DRUG INTERACTION [None]
  - GAIT DISTURBANCE [None]
  - GAMMA-GLUTAMYLTRANSFERASE INCREASED [None]
  - METABOLIC DISORDER [None]
  - NERVOUS SYSTEM DISORDER [None]
  - PULMONARY TUBERCULOSIS [None]
